FAERS Safety Report 22539247 (Version 1)
Quarter: 2023Q2

REPORT INFORMATION
  Report Type: Spontaneous
  Country: CN (occurrence: CN)
  Receive Date: 20230609
  Receipt Date: 20230609
  Transmission Date: 20230721
  Serious: Yes (Hospitalization)
  Sender: FDA-Public Use
  Company Number: CN-ABBVIE-5280622

PATIENT
  Age: 54 Year
  Sex: Male

DRUGS (5)
  1. VENETOCLAX [Suspect]
     Active Substance: VENETOCLAX
     Indication: Chemotherapy
     Dosage: 100 MILLIGRAM?DURATION TEXT: D1
     Route: 048
     Dates: start: 20230508
  2. VENETOCLAX [Suspect]
     Active Substance: VENETOCLAX
     Indication: Chemotherapy
     Dosage: 400 MILLIGRAM?DURATION TEXT: D3-28
     Route: 048
  3. VENETOCLAX [Suspect]
     Active Substance: VENETOCLAX
     Indication: Chemotherapy
     Dosage: 200 MILLIGRAM?DURATION TEXT: D2
     Route: 048
  4. AZACITIDINE [Suspect]
     Active Substance: AZACITIDINE
     Indication: Acute myeloid leukaemia
     Dosage: 100 MILLIGRAM - DURATION TEXT: D1-6?AZACITIDINE
     Route: 058
     Dates: start: 20230508
  5. AZACITIDINE [Suspect]
     Active Substance: AZACITIDINE
     Indication: Acute myeloid leukaemia
     Dosage: 200 MILLIGRAM DURATION TEXT: D7?AZACITIDINE
     Route: 058
     Dates: end: 20230514

REACTIONS (1)
  - Myelosuppression [Unknown]

NARRATIVE: CASE EVENT DATE: 20230527
